FAERS Safety Report 25670569 (Version 1)
Quarter: 2025Q3

REPORT INFORMATION
  Report Type: Spontaneous
  Country: US (occurrence: None)
  Receive Date: 20250812
  Receipt Date: 20250812
  Transmission Date: 20251020
  Serious: Yes (Hospitalization)
  Sender: FDA-CTU
  Company Number: None

PATIENT
  Age: 85 Year
  Sex: Female
  Weight: 69.1 kg

DRUGS (2)
  1. DARATUMUMAB\HYALURONIDASE-FIHJ [Suspect]
     Active Substance: DARATUMUMAB\HYALURONIDASE-FIHJ
     Dates: end: 20250630
  2. LENALIDOMIDE [Suspect]
     Active Substance: LENALIDOMIDE
     Dates: end: 20250712

REACTIONS (8)
  - Constipation [None]
  - Gastrointestinal wall thickening [None]
  - Computerised tomogram abnormal [None]
  - Large intestine infection [None]
  - Colitis ischaemic [None]
  - Clostridium test positive [None]
  - Atrial fibrillation [None]
  - Pleural effusion [None]

NARRATIVE: CASE EVENT DATE: 20250712
